FAERS Safety Report 20538309 (Version 1)
Quarter: 2022Q1

REPORT INFORMATION
  Report Type: Spontaneous
  Country: CN (occurrence: CN)
  Receive Date: 20220302
  Receipt Date: 20220302
  Transmission Date: 20220424
  Serious: Yes (Other)
  Sender: FDA-Public Use
  Company Number: CN-BAYER-2021-205919

PATIENT
  Age: 60 Year
  Sex: Male
  Weight: 80 kg

DRUGS (2)
  1. XARELTO [Suspect]
     Active Substance: RIVAROXABAN
     Indication: Symptomatic treatment
     Dosage: 20 MG, QD
     Route: 048
     Dates: start: 20190219, end: 20190305
  2. SHU XUE TONG [Concomitant]
     Indication: Symptomatic treatment
     Dosage: 6 ML, QD
     Route: 041
     Dates: start: 20190222, end: 20190226

REACTIONS (5)
  - Nephrocalcinosis [Unknown]
  - Hydronephrosis [Unknown]
  - Haematuria [Recovering/Resolving]
  - Renal cyst [Unknown]
  - Ureterolithiasis [Unknown]

NARRATIVE: CASE EVENT DATE: 20190220
